FAERS Safety Report 19665306 (Version 2)
Quarter: 2021Q3

REPORT INFORMATION
  Report Type: Report from Study
  Country: None (occurrence: US)
  Receive Date: 20210806
  Receipt Date: 20210812
  Transmission Date: 20211014
  Serious: Yes (Hospitalization, Other)
  Sender: FDA-Public Use
  Company Number: US-ABBVIE-21K-163-3873622-00

PATIENT
  Age: 65 Year
  Sex: Female
  Weight: 138.47 kg

DRUGS (8)
  1. COVID?19 VACCINE [Concomitant]
     Dosage: MODERNA?SECOND DOSE
     Route: 030
     Dates: start: 20210311, end: 20210311
  2. LEVOTHYROXINE. [Concomitant]
     Active Substance: LEVOTHYROXINE
     Indication: HYPOTHYROIDISM
  3. COVID?19 VACCINE [Concomitant]
     Indication: COVID-19 IMMUNISATION
     Dosage: MODERNA?FIRST DOSE
     Route: 030
     Dates: start: 20210210, end: 20210210
  4. CRESTOR [Concomitant]
     Active Substance: ROSUVASTATIN CALCIUM
     Indication: BLOOD CHOLESTEROL INCREASED
  5. MYRBETRIQ [Concomitant]
     Active Substance: MIRABEGRON
     Indication: INCONTINENCE
  6. LASIX [Concomitant]
     Active Substance: FUROSEMIDE
     Indication: FLUID RETENTION
  7. HUMIRA [Suspect]
     Active Substance: ADALIMUMAB
     Indication: ANKYLOSING SPONDYLITIS
     Dosage: CITRATE FREE
     Route: 058
     Dates: start: 201806
  8. POTASSIUM [Concomitant]
     Active Substance: POTASSIUM
     Indication: SUPPLEMENTATION THERAPY

REACTIONS (5)
  - Dyspnoea [Unknown]
  - Nodule [Recovering/Resolving]
  - Intestinal obstruction [Recovered/Resolved]
  - Hypoaesthesia [Unknown]
  - Pain in extremity [Unknown]

NARRATIVE: CASE EVENT DATE: 202001
